FAERS Safety Report 10802292 (Version 2)
Quarter: 2015Q1

REPORT INFORMATION
  Report Type: Spontaneous
  Country: GB (occurrence: GB)
  Receive Date: 20150217
  Receipt Date: 20150223
  Transmission Date: 20150721
  Serious: Yes (Other)
  Sender: FDA-Public Use
  Company Number: GB-SA-2015SA017043

PATIENT
  Age: 12 Year
  Sex: Male

DRUGS (1)
  1. FEXOFENADINE [Suspect]
     Active Substance: FEXOFENADINE\FEXOFENADINE HYDROCHLORIDE
     Indication: MULTIPLE ALLERGIES
     Dosage: TAKEN TO: 5-6 DAYS AGO
     Route: 048
     Dates: start: 20150125

REACTIONS (13)
  - Chest pain [Unknown]
  - Nightmare [Unknown]
  - Crying [Unknown]
  - Oropharyngeal pain [Unknown]
  - Drug dose omission [Unknown]
  - Sleep disorder [Unknown]
  - Rash [Unknown]
  - Self injurious behaviour [Unknown]
  - Sleep terror [Unknown]
  - Screaming [Unknown]
  - Amnesia [Unknown]
  - Dyspnoea [Unknown]
  - Palpitations [Unknown]
